FAERS Safety Report 4362577-4 (Version None)
Quarter: 2004Q2

REPORT INFORMATION
  Report Type: 
  Country: None (occurrence: None)
  Receive Date: 20040520
  Receipt Date: 20040507
  Transmission Date: 20050107
  Serious: Yes (Other)
  Sender: FDA-Public Use
  Company Number: US-JNJFOC-20040501365

PATIENT
  Age: 75 Year
  Sex: Female

DRUGS (13)
  1. INFLIXIMAB (INFLIXIMAB, RECOMBINANT) LYOPHILIZED POWDER [Suspect]
     Indication: RHEUMATOID ARTHRITIS
     Dosage: INTRAVENOUS
     Route: 042
     Dates: start: 20010228
  2. ATENOLOL [Concomitant]
  3. DETROL LA (TOLTERODINE L-TARTRATE) [Concomitant]
  4. METHOTREXATE [Concomitant]
  5. LOZOL [Concomitant]
  6. MULTIVITAMIN (MULTIVITAMINS) [Concomitant]
  7. ORUDIS [Concomitant]
  8. PEPTO-BISMOL (BISMUTH SUBSALICYLATE) [Concomitant]
  9. SYNTHROID [Concomitant]
  10. XANAX [Concomitant]
  11. POTASSIUM (POTASSIUM) [Concomitant]
  12. TEMAZEPAM [Concomitant]
  13. OCCUVITE (OCUVITE) [Concomitant]

REACTIONS (2)
  - BASAL CELL CARCINOMA [None]
  - MALIGNANT MELANOMA [None]
